FAERS Safety Report 8973690 (Version 1)
Quarter: 2012Q4

REPORT INFORMATION
  Report Type: 
  Country: CN (occurrence: CN)
  Receive Date: 20121218
  Receipt Date: 20121218
  Transmission Date: 20130627
  Serious: Yes (Hospitalization, Other)
  Sender: FDA-Public Use
  Company Number: PHHY2012CN107092

PATIENT
  Age: 32 Year
  Sex: Male
  Weight: 49 kg

DRUGS (1)
  1. SEBIVO [Suspect]
     Indication: ANTIVIRAL TREATMENT
     Dosage: 0.6 g, QD
     Route: 048
     Dates: start: 20080328, end: 20090105

REACTIONS (9)
  - Muscle disorder [Unknown]
  - Musculoskeletal pain [Recovered/Resolved]
  - Asthenia [Unknown]
  - Myalgia [Unknown]
  - Blood creatine phosphokinase increased [Unknown]
  - Productive cough [Unknown]
  - Cough [Unknown]
  - Alanine aminotransferase increased [Unknown]
  - Nausea [Recovered/Resolved]
